FAERS Safety Report 5920189-2 (Version None)
Quarter: 2008Q4

REPORT INFORMATION
  Report Type: 
  Country: None (occurrence: None)
  Receive Date: 20081016
  Receipt Date: 20081007
  Transmission Date: 20090506
  Serious: Yes (Hospitalization)
  Sender: FDA-Public Use
  Company Number: US-CELGENEUS-163-20785-08090645

PATIENT
  Sex: Female

DRUGS (1)
  1. THALOMID [Suspect]
     Route: 048

REACTIONS (2)
  - FRACTURE [None]
  - MULTIPLE MYELOMA [None]
